FAERS Safety Report 18602590 (Version 1)
Quarter: 2020Q4

REPORT INFORMATION
  Report Type: Spontaneous
  Country: US (occurrence: US)
  Receive Date: 20201210
  Receipt Date: 20201210
  Transmission Date: 20210114
  Serious: No
  Sender: FDA-Public Use
  Company Number: US-PERRIGO-20US013077

PATIENT
  Age: 17 Year
  Sex: Male
  Weight: 58.96 kg

DRUGS (2)
  1. ALBUTEROL SULFATE. [Suspect]
     Active Substance: ALBUTEROL SULFATE
     Indication: ASTHMA
     Dosage: 90 TO 180 MCG, 2 TO 3 TIMES DAILY, PRN
     Route: 055
     Dates: start: 202007, end: 20200828
  2. ANTI-ASTHMATICS [Concomitant]
     Active Substance: UNSPECIFIED INGREDIENT
     Indication: ASTHMA PROPHYLAXIS
     Dosage: UNK
     Route: 065
     Dates: start: 202008

REACTIONS (2)
  - Device delivery system issue [Not Recovered/Not Resolved]
  - Asthma [Recovered/Resolved]

NARRATIVE: CASE EVENT DATE: 20200828
